FAERS Safety Report 9829359 (Version 1)
Quarter: 2014Q1

REPORT INFORMATION
  Report Type: Spontaneous
  Country: US (occurrence: US)
  Receive Date: 20140120
  Receipt Date: 20140120
  Transmission Date: 20141002
  Serious: No
  Sender: FDA-Public Use
  Company Number: US-B.I. PHARMACEUTICALS,INC./RIDGEFIELD-2014-BI-00967BP

PATIENT
  Sex: Female
  Weight: 79 kg

DRUGS (1)
  1. PRADAXA [Suspect]
     Dosage: UKN
     Route: 048
     Dates: start: 2012, end: 2012

REACTIONS (4)
  - Abdominal pain upper [Not Recovered/Not Resolved]
  - Haematochezia [Recovered/Resolved]
  - Constipation [Not Recovered/Not Resolved]
  - Vomiting [Not Recovered/Not Resolved]
